FAERS Safety Report 8687477 (Version 2)
Quarter: 2012Q4

REPORT INFORMATION
  Report Type: 
  Country: US (occurrence: US)
  Receive Date: 20120727
  Receipt Date: 20121001
  Transmission Date: 20130627
  Serious: Yes (Hospitalization, Disabling, Other)
  Sender: FDA-Public Use
  Company Number: PHEH2012US014467

PATIENT
  Sex: Female

DRUGS (1)
  1. TEGRETOL-XR [Suspect]
     Dosage: UNK UKN, UNK

REACTIONS (10)
  - Fall [Unknown]
  - Head injury [Unknown]
  - Joint injury [Unknown]
  - Balance disorder [Unknown]
  - Dysstasia [Unknown]
  - Dizziness [Unknown]
  - Vision blurred [Unknown]
  - Thirst [Unknown]
  - Lethargy [Unknown]
  - Nausea [Unknown]
